FAERS Safety Report 5737616-6 (Version None)
Quarter: 2008Q2

REPORT INFORMATION
  Report Type: 
  Country: None (occurrence: None)
  Receive Date: 20080514
  Receipt Date: 20080428
  Transmission Date: 20081010
  Serious: Yes (Hospitalization)
  Sender: FDA-Public Use
  Company Number: NL-BAYER-200611928GDS

PATIENT
  Age: 65 Year
  Sex: Female
  Weight: 48 kg

DRUGS (5)
  1. SORAFENIB [Suspect]
     Indication: RENAL CELL CARCINOMA
     Dosage: TOTAL DAILY DOSE: 800 MG
     Route: 048
     Dates: start: 20060418, end: 20060516
  2. SORAFENIB [Suspect]
     Dosage: TOTAL DAILY DOSE: 800 MG
     Route: 048
     Dates: start: 20060516
  3. NOVOLOG MIX 70/30 [Concomitant]
     Indication: DIABETES MELLITUS
     Route: 058
  4. LIVIAL [Concomitant]
     Indication: OESTROGEN REPLACEMENT THERAPY
     Route: 048
     Dates: start: 19940101
  5. ENALAPRIL MALEATE [Concomitant]
     Indication: HYPERTENSION
     Route: 048
     Dates: end: 20060412

REACTIONS (1)
  - CEREBROVASCULAR ACCIDENT [None]
